FAERS Safety Report 10125945 (Version 5)
Quarter: 2014Q2

REPORT INFORMATION
  Report Type: Spontaneous
  Country: JP (occurrence: JP)
  Receive Date: 20140427
  Receipt Date: 20140615
  Transmission Date: 20141212
  Serious: Yes (Death)
  Sender: FDA-Public Use
  Company Number: PHHY2014JP049553

PATIENT
  Age: 46 Year
  Sex: Female

DRUGS (1)
  1. AFINITOR [Suspect]
     Indication: METASTATIC RENAL CELL CARCINOMA
     Dosage: 10 MG, DAILY
     Route: 048
     Dates: start: 20121227, end: 201307

REACTIONS (10)
  - Intestinal perforation [Fatal]
  - Ileus [Fatal]
  - Fistula [Fatal]
  - Abdominal pain [Fatal]
  - Alopecia [Unknown]
  - Anaemia [Not Recovered/Not Resolved]
  - Proteinuria [Unknown]
  - Stomatitis [Unknown]
  - Rash [Unknown]
  - Malignant neoplasm progression [Unknown]
